FAERS Safety Report 4488079-2 (Version None)
Quarter: 2004Q4

REPORT INFORMATION
  Report Type: 
  Country: None (occurrence: None)
  Receive Date: 20041028
  Receipt Date: 20041019
  Transmission Date: 20050328
  Serious: Yes (Other)
  Sender: FDA-Public Use
  Company Number: GB-GLAXOSMITHKLINE-B0348743A

PATIENT
  Age: 85 Year
  Sex: Male
  Weight: 74 kg

DRUGS (3)
  1. SERETIDE [Suspect]
     Indication: CHRONIC OBSTRUCTIVE AIRWAYS DISEASE
     Route: 055
     Dates: start: 20040901
  2. PROPAFENONE HYDROCHLORIDE [Concomitant]
     Indication: ATRIAL FLUTTER
     Dosage: 150MG PER DAY
     Route: 048
     Dates: start: 19980101
  3. FUROSEMIDE [Concomitant]
     Dosage: 40MG PER DAY
     Route: 048

REACTIONS (3)
  - CHEST DISCOMFORT [None]
  - DECREASED APPETITE [None]
  - MALAISE [None]
